FAERS Safety Report 4380545-3 (Version None)
Quarter: 2004Q2

REPORT INFORMATION
  Report Type: 
  Country: None (occurrence: None)
  Receive Date: 20040618
  Receipt Date: 20040610
  Transmission Date: 20050107
  Serious: Yes (Other)
  Sender: FDA-Public Use
  Company Number: JP-MERCK-0406USA01500

PATIENT
  Age: 70 Year
  Sex: Female

DRUGS (3)
  1. PEPCID RPD [Suspect]
     Route: 048
     Dates: start: 20040123, end: 20040609
  2. FLUVASTATIN SODIUM [Concomitant]
     Route: 065
     Dates: start: 20011116
  3. MUCOSTA [Concomitant]
     Route: 065
     Dates: start: 20011214

REACTIONS (2)
  - ANAEMIA [None]
  - GRANULOCYTOPENIA [None]
